FAERS Safety Report 6905370-8 (Version None)
Quarter: 2010Q3

REPORT INFORMATION
  Report Type: 
  Country: None (occurrence: None)
  Receive Date: 20100802
  Receipt Date: 20100721
  Transmission Date: 20110219
  Serious: Yes (Hospitalization)
  Sender: FDA-Public Use
  Company Number: 2010091929

PATIENT
  Age: 61 Year
  Sex: Male

DRUGS (7)
  1. FRAGMIN [Suspect]
     Dates: start: 20050101, end: 20100424
  2. BLINDED THERAPY [Suspect]
     Indication: MYELOFIBROSIS
     Dates: start: 20100329
  3. ALLOPURINOL [Concomitant]
  4. KEPPRA [Concomitant]
  5. NADOLOL [Concomitant]
  6. PREVACID [Concomitant]
  7. TYLENOL W/ CODEINE [Concomitant]

REACTIONS (13)
  - AMMONIA INCREASED [None]
  - ASCITES [None]
  - COLONIC POLYP [None]
  - GASTRIC VARICES [None]
  - HAEMATOCRIT DECREASED [None]
  - HAEMOGLOBIN DECREASED [None]
  - HAEMORRHOIDAL HAEMORRHAGE [None]
  - LOWER GASTROINTESTINAL HAEMORRHAGE [None]
  - PORTAL HYPERTENSION [None]
  - PORTAL HYPERTENSIVE GASTROPATHY [None]
  - PORTAL VEIN THROMBOSIS [None]
  - UPPER GASTROINTESTINAL HAEMORRHAGE [None]
  - VARICES OESOPHAGEAL [None]
